FAERS Safety Report 9298579 (Version 1)
Quarter: 2013Q2

REPORT INFORMATION
  Report Type: Spontaneous
  Country: CA (occurrence: CA)
  Receive Date: 20130520
  Receipt Date: 20130520
  Transmission Date: 20140414
  Serious: Yes (Life-Threatening, Other)
  Sender: FDA-Public Use
  Company Number: CA-ASTRAZENECA-2013SE34580

PATIENT
  Age: 67 Year
  Sex: Female

DRUGS (3)
  1. QUETIAPINE [Suspect]
     Route: 048
  2. ESCITALOPRAM [Suspect]
  3. FUROSEMIDE [Suspect]

REACTIONS (2)
  - Electrocardiogram QT prolonged [Unknown]
  - Torsade de pointes [Unknown]
